FAERS Safety Report 23916969 (Version 5)
Quarter: 2024Q2

REPORT INFORMATION
  Report Type: Spontaneous
  Country: FR (occurrence: FR)
  Receive Date: 20240529
  Receipt Date: 20240613
  Transmission Date: 20240716
  Serious: Yes (Other)
  Sender: FDA-Public Use
  Company Number: FR-JAZZ PHARMACEUTICALS-2024-FR-008188

PATIENT

DRUGS (5)
  1. CANNABIDIOL [Suspect]
     Active Substance: CANNABIDIOL
     Indication: Epilepsy
     Dosage: 120 MILLIGRAM, BID
     Dates: start: 20231002
  2. CANNABIDIOL [Suspect]
     Active Substance: CANNABIDIOL
     Indication: Behaviour disorder
  3. VALPROATE SODIUM [Concomitant]
     Active Substance: VALPROATE SODIUM
     Indication: Product used for unknown indication
  4. CLOBAZAM [Concomitant]
     Active Substance: CLOBAZAM
     Indication: Product used for unknown indication
  5. LAMICTAL [Concomitant]
     Active Substance: LAMOTRIGINE
     Indication: Product used for unknown indication

REACTIONS (5)
  - Epilepsy [Unknown]
  - Behaviour disorder [Unknown]
  - Drug ineffective [Unknown]
  - Liquid product physical issue [Unknown]
  - Wrong technique in product usage process [Unknown]
